FAERS Safety Report 7800546-X (Version None)
Quarter: 2011Q4

REPORT INFORMATION
  Report Type: 
  Country: None (occurrence: None)
  Receive Date: 20111006
  Receipt Date: 20111003
  Transmission Date: 20120403
  Serious: Yes (Hospitalization, Other)
  Sender: FDA-Public Use
  Company Number: US-PFIZER INC-2011235740

PATIENT
  Sex: Female
  Weight: 99.77 kg

DRUGS (8)
  1. DEPAKOTE [Suspect]
     Indication: ARRHYTHMIA
     Dosage: UNK
     Dates: start: 20110101, end: 20110101
  2. LAMICTAL [Concomitant]
     Indication: BIPOLAR DISORDER
  3. GEODON [Suspect]
     Indication: BIPOLAR DISORDER
     Dosage: 60 MG, 2X/DAY
     Route: 048
     Dates: start: 20090601
  4. GEODON [Suspect]
     Dosage: 80 MG, 2X/DAY
     Route: 048
  5. TRILEPTAL [Concomitant]
     Dosage: UNK
  6. MAGNESIUM [Concomitant]
     Indication: CARDIAC DISORDER
     Dosage: UNK
  7. LAMICTAL [Concomitant]
     Indication: MOOD ALTERED
     Dosage: UNK
  8. GEODON [Suspect]
     Dosage: 60 MG, 2X/DAY
     Route: 048

REACTIONS (3)
  - MANIA [None]
  - INSOMNIA [None]
  - SWELLING [None]
